FAERS Safety Report 20983993 (Version 1)
Quarter: 2022Q2

REPORT INFORMATION
  Report Type: Spontaneous
  Country: CA (occurrence: CA)
  Receive Date: 20220621
  Receipt Date: 20220621
  Transmission Date: 20220721
  Serious: Yes (Hospitalization, Other)
  Sender: FDA-Public Use
  Company Number: CA-SAMSUNG BIOEPIS-SB-2022-14608

PATIENT
  Age: 56 Year
  Sex: Male
  Weight: 95 kg

DRUGS (1)
  1. INFLIXIMAB [Suspect]
     Active Substance: INFLIXIMAB
     Indication: Colitis ulcerative
     Dosage: THERAPY DURATION: 307 (UNIT UNKNOWN)
     Route: 042

REACTIONS (7)
  - Pulmonary embolism [Recovered/Resolved]
  - Atrial fibrillation [Recovered/Resolved]
  - Femur fracture [Recovered/Resolved]
  - Hip fracture [Recovered/Resolved]
  - Inappropriate schedule of product administration [Recovered/Resolved]
  - Intentional product use issue [Recovered/Resolved]
  - Off label use [Recovered/Resolved]
